FAERS Safety Report 17144158 (Version 1)
Quarter: 2019Q4

REPORT INFORMATION
  Report Type: Spontaneous
  Country: US (occurrence: US)
  Receive Date: 20191119
  Receipt Date: 20191119
  Transmission Date: 20200122
  Serious: No
  Sender: FDA-Public Use
  Company Number: None

PATIENT
  Sex: Female

DRUGS (1)
  1. VITRAKVI [Suspect]
     Active Substance: LAROTRECTINIB
     Indication: BREAST CANCER FEMALE
     Dosage: ?          OTHER FREQUENCY:2 TABS DAILY ;?
     Route: 048
     Dates: start: 20190503

REACTIONS (1)
  - Balance disorder [None]
